FAERS Safety Report 25481567 (Version 1)
Quarter: 2025Q2

REPORT INFORMATION
  Report Type: Spontaneous
  Country: CA (occurrence: CA)
  Receive Date: 20250626
  Receipt Date: 20250626
  Transmission Date: 20250717
  Serious: Yes (Other)
  Sender: NOVO NORDISK
  Company Number: CA-NOVOPROD-1463150

PATIENT
  Sex: Female

DRUGS (2)
  1. OZEMPIC [Suspect]
     Active Substance: SEMAGLUTIDE
     Route: 058
     Dates: start: 20231001, end: 20240301
  2. OZEMPIC [Suspect]
     Active Substance: SEMAGLUTIDE
     Indication: Off label use
     Route: 058
     Dates: start: 20230101

REACTIONS (3)
  - Loss of consciousness [Recovered/Resolved]
  - Blood sodium decreased [Unknown]
  - Off label use [Recovered/Resolved]

NARRATIVE: CASE EVENT DATE: 20230101
